FAERS Safety Report 4275074-1 (Version None)
Quarter: 2004Q1

REPORT INFORMATION
  Report Type: 
  Country: None (occurrence: None)
  Receive Date: 20040116
  Receipt Date: 20040112
  Transmission Date: 20041129
  Serious: Yes (Hospitalization)
  Sender: FDA-Public Use
  Company Number: 200410028BNE

PATIENT
  Age: 72 Year
  Sex: Male

DRUGS (3)
  1. ASPIRIN [Suspect]
     Dosage: 75 MG, TOTAL DAILY, ORAL
     Route: 048
     Dates: end: 20031223
  2. ATORVASTATIN [Concomitant]
  3. ZOLADEX [Concomitant]

REACTIONS (3)
  - HAEMATEMESIS [None]
  - HAEMATURIA [None]
  - MELAENA [None]
